FAERS Safety Report 7265249-1 (Version None)
Quarter: 2011Q1

REPORT INFORMATION
  Report Type: 
  Country: None (occurrence: None)
  Receive Date: 20110131
  Receipt Date: 20110126
  Transmission Date: 20110831
  Serious: Yes (Death, Hospitalization)
  Sender: FDA-Public Use
  Company Number: FR-ASTRAZENECA-2011SE04819

PATIENT
  Age: 31917 Day
  Sex: Male

DRUGS (13)
  1. NEXIUM [Suspect]
     Route: 042
     Dates: start: 20101020, end: 20101122
  2. PLITICAN [Suspect]
     Route: 042
     Dates: start: 20101108, end: 20101123
  3. ACUPAN [Suspect]
     Dates: start: 20101021, end: 20101124
  4. ARIXTRA [Suspect]
     Route: 058
     Dates: end: 20101121
  5. FORLAX [Concomitant]
  6. CARDENSIEL [Concomitant]
  7. TRIATEC [Concomitant]
  8. CEFTRIAXONE [Suspect]
     Route: 042
     Dates: start: 20101112, end: 20101122
  9. SEROPLEX [Suspect]
     Route: 048
     Dates: start: 20101108, end: 20101122
  10. CASODEX [Concomitant]
  11. CALCIPARINE [Suspect]
     Route: 058
     Dates: start: 20101108, end: 20101117
  12. SOLU-MEDROL [Suspect]
     Route: 042
     Dates: start: 20101114, end: 20101125
  13. LASIX [Concomitant]

REACTIONS (1)
  - THROMBOCYTOPENIA [None]
